FAERS Safety Report 9788684 (Version 2)
Quarter: 2014Q1

REPORT INFORMATION
  Report Type: Report from Study
  Country: JP (occurrence: JP)
  Receive Date: 20131230
  Receipt Date: 20140130
  Transmission Date: 20141002
  Serious: Yes (Death, Life-Threatening, Hospitalization, Other)
  Sender: FDA-Public Use
  Company Number: JP-TAKEDA-2013TJP004286

PATIENT
  Age: 76 Year
  Sex: Male

DRUGS (11)
  1. LANSOPRAZOLE [Suspect]
     Indication: PROPHYLAXIS AGAINST GASTROINTESTINAL ULCER
     Dosage: 15 MG, QD
     Route: 048
     Dates: start: 20121122, end: 20130406
  2. HYPEN                              /00613801/ [Concomitant]
     Indication: RHEUMATOID ARTHRITIS
     Dosage: 200 MG,1 DAYS
     Route: 048
     Dates: start: 20071116
  3. BAYASPIRIN [Concomitant]
     Dosage: 100 MG, 1 DAYS
     Route: 048
     Dates: start: 20070727, end: 20130610
  4. VOLTAREN                           /00372302/ [Concomitant]
     Indication: RHEUMATOID ARTHRITIS
     Dosage: OPTIMAL DOSE
     Route: 062
  5. INTEBAN SUPPO [Concomitant]
     Indication: RHEUMATOID ARTHRITIS
     Dosage: 50 MG, 1 DAYS
     Route: 054
  6. RIMATIL [Concomitant]
     Indication: RHEUMATOID ARTHRITIS
     Dosage: 100 MG, 1 DAYS
     Route: 048
  7. HERBESSER R [Concomitant]
     Dosage: 100 MG, 1 DAYS
     Route: 048
     Dates: start: 20070824
  8. LASIX                              /00032601/ [Concomitant]
     Dosage: 60 MG, 1 DAYS
     Route: 048
     Dates: start: 20090721
  9. ZYLORIC [Concomitant]
     Dosage: 100 MG, 1 DAYS
     Route: 048
     Dates: start: 20080909, end: 20130610
  10. EDIROL(ELDECALCITOL) [Concomitant]
     Dosage: 0.75 ?G,1 DAYS
     Route: 048
     Dates: start: 20120620
  11. DIGOXIN KY [Concomitant]
     Dosage: 0.125 MG, 1 DAYS
     Route: 048
     Dates: start: 20120829

REACTIONS (3)
  - Cardiac failure [Fatal]
  - Mesothelioma malignant [Not Recovered/Not Resolved]
  - Infectious pleural effusion [Recovering/Resolving]
